FAERS Safety Report 26211341 (Version 1)
Quarter: 2025Q4

REPORT INFORMATION
  Report Type: Spontaneous
  Country: US (occurrence: None)
  Receive Date: 20251230
  Receipt Date: 20251230
  Transmission Date: 20260117
  Serious: No
  Sender: APOTEX
  Company Number: US-APOTEX-2025AP034104

PATIENT
  Age: 72 Year
  Sex: Female

DRUGS (1)
  1. IMIQUIMOD [Suspect]
     Active Substance: IMIQUIMOD
     Indication: Cutaneous T-cell lymphoma refractory
     Dosage: UNK
     Route: 065

REACTIONS (2)
  - Skin lesion [Recovered/Resolved]
  - Condition aggravated [Recovered/Resolved]
